FAERS Safety Report 11715934 (Version 4)
Quarter: 2015Q4

REPORT INFORMATION
  Report Type: Report from Study
  Country: AU (occurrence: AU)
  Receive Date: 20151109
  Receipt Date: 20151125
  Transmission Date: 20160304
  Serious: Yes (Hospitalization)
  Sender: FDA-Public Use
  Company Number: AU-BIOGENIDEC-2015BI147367

PATIENT
  Age: 27 Year
  Sex: Female

DRUGS (1)
  1. PLEGRIDY [Suspect]
     Active Substance: PEGINTERFERON BETA-1A
     Indication: MULTIPLE SCLEROSIS
     Route: 058
     Dates: start: 20151026

REACTIONS (9)
  - Band sensation [Unknown]
  - Hyperaesthesia [Unknown]
  - Injection site erythema [Not Recovered/Not Resolved]
  - Hypoaesthesia [Unknown]
  - Urinary retention [Unknown]
  - Headache [Unknown]
  - Infection [Not Recovered/Not Resolved]
  - Hordeolum [Unknown]
  - Asthenia [Unknown]

NARRATIVE: CASE EVENT DATE: 201511
